FAERS Safety Report 6512804-X (Version None)
Quarter: 2009Q4

REPORT INFORMATION
  Report Type: 
  Country: None (occurrence: None)
  Receive Date: 20091217
  Receipt Date: 20091120
  Transmission Date: 20100525
  Serious: Yes (Hospitalization)
  Sender: FDA-Public Use
  Company Number: INT_00017_2009

PATIENT
  Sex: Female

DRUGS (7)
  1. CEFEPIME [Suspect]
     Indication: DRUG USE FOR UNKNOWN INDICATION
     Dosage: (DF), (2 G, FREQUENCY UNKNOWN INTRAVENOUS BOLUS), (4G CONTINUOUS INFUSION OVER 24 HOURS)
     Route: 040
  2. CIPROFLOXACIN [Suspect]
     Indication: DRUG USE FOR UNKNOWN INDICATION
     Dosage: (DF)
  3. VANCOMYCIN [Suspect]
     Indication: DRUG USE FOR UNKNOWN INDICATION
     Dosage: (DF)
  4. AMIKACIN [Suspect]
     Dosage: (500 MG, FREQUENCY UNKNOWN INTRAVENOUS (NOT OTHERWISE SPECIFIED)
     Route: 042
  5. PIPERACILLIN AND TAZOBACTAM [Suspect]
     Indication: DRUG USE FOR UNKNOWN INDICATION
     Dosage: (3.375 G TID)
  6. MIDAZOLAM HCL [Suspect]
     Indication: DRUG USE FOR UNKNOWN INDICATION
     Dosage: (1 MG Q1H INTRAVENOUS DRIP), (2.5 MG Q1H INTRAVENOUS DRIP)
     Route: 041
  7. LEVETIRACETAM [Suspect]
     Dosage: (500 MG BID)

REACTIONS (21)
  - AGITATION [None]
  - APHASIA [None]
  - BLOOD CREATINE INCREASED [None]
  - BLOOD UREA INCREASED [None]
  - CEREBRAL ATROPHY [None]
  - CEREBRAL VENTRICLE DILATATION [None]
  - CREATININE RENAL CLEARANCE DECREASED [None]
  - CULTURE WOUND POSITIVE [None]
  - DEPRESSED LEVEL OF CONSCIOUSNESS [None]
  - DYSKINESIA [None]
  - ENCEPHALOPATHY [None]
  - HAEMODIALYSIS [None]
  - IATROGENIC INJURY [None]
  - LUNG INFILTRATION [None]
  - NEUROTOXICITY [None]
  - NO THERAPEUTIC RESPONSE [None]
  - PLEURAL EFFUSION [None]
  - PSEUDOMONAS INFECTION [None]
  - SPUTUM CULTURE POSITIVE [None]
  - STATUS EPILEPTICUS [None]
  - WOUND DRAINAGE [None]
